FAERS Safety Report 4706674-X (Version None)
Quarter: 2005Q3

REPORT INFORMATION
  Report Type: 
  Country: None (occurrence: None)
  Receive Date: 20050705
  Receipt Date: 20050623
  Transmission Date: 20060218
  Serious: Yes (Hospitalization)
  Sender: FDA-Public Use
  Company Number: 2005SE03705

PATIENT
  Age: 19414 Day
  Sex: Female
  Weight: 71 kg

DRUGS (2)
  1. TAMOXIFEN [Suspect]
     Indication: BREAST CANCER
     Route: 048
     Dates: start: 20020524
  2. THYCAPZOL [Concomitant]

REACTIONS (2)
  - HYPERMETABOLISM [None]
  - TOXIC NODULAR GOITRE [None]
